FAERS Safety Report 10384126 (Version 2)
Quarter: 2014Q3

REPORT INFORMATION
  Report Type: Spontaneous
  Country: JP (occurrence: JP)
  Receive Date: 20140814
  Receipt Date: 20140915
  Transmission Date: 20150326
  Serious: Yes (Hospitalization, Other)
  Sender: FDA-Public Use
  Company Number: PHHY2014JP099459

PATIENT
  Age: 64 Year
  Sex: Female

DRUGS (3)
  1. CARBAMAZEPIN [Concomitant]
     Active Substance: CARBAMAZEPINE
     Dosage: UNK UKN, UNK
     Route: 048
  2. LASIX [Suspect]
     Active Substance: FUROSEMIDE
     Dosage: UNK UKN, UNK
  3. FEMARA [Suspect]
     Active Substance: LETROZOLE
     Indication: BREAST CANCER
     Dosage: 2.5 MG, DAILY
     Route: 048
     Dates: start: 20130201

REACTIONS (2)
  - Dehydration [Unknown]
  - Hypokalaemia [Recovering/Resolving]

NARRATIVE: CASE EVENT DATE: 20140802
